FAERS Safety Report 8833016 (Version 1)
Quarter: 2012Q4

REPORT INFORMATION
  Report Type: 
  Country: US (occurrence: US)
  Receive Date: 20121010
  Receipt Date: 20121010
  Transmission Date: 20130627
  Serious: No
  Sender: FDA-Public Use
  Company Number: US-TEVA-351210USA

PATIENT
  Sex: Female

DRUGS (3)
  1. TRIAMCINOLONE [Suspect]
  2. AMLODIPINE [Concomitant]
  3. ATENOLOL [Concomitant]

REACTIONS (2)
  - Glossodynia [Unknown]
  - Blood pressure increased [Unknown]
